FAERS Safety Report 26055090 (Version 1)
Quarter: 2025Q4

REPORT INFORMATION
  Report Type: Spontaneous
  Country: EU (occurrence: EU)
  Receive Date: 20251117
  Receipt Date: 20251117
  Transmission Date: 20260117
  Serious: Yes (Other)
  Sender: MYLAN
  Company Number: EU-ADIENNEP-2025AD000758

PATIENT
  Sex: Female

DRUGS (28)
  1. METHOTREXATE [Suspect]
     Active Substance: METHOTREXATE
     Indication: Chemotherapy
     Dosage: 8000 MILLIGRAM/SQ. METER, TOTAL
  2. METHOTREXATE [Suspect]
     Active Substance: METHOTREXATE
     Dosage: 8000 MILLIGRAM/SQ. METER, TOTAL
     Route: 065
  3. METHOTREXATE [Suspect]
     Active Substance: METHOTREXATE
     Dosage: 8000 MILLIGRAM/SQ. METER, TOTAL
     Route: 065
  4. METHOTREXATE [Suspect]
     Active Substance: METHOTREXATE
     Dosage: 8000 MILLIGRAM/SQ. METER, TOTAL
  5. THIOTEPA [Suspect]
     Active Substance: THIOTEPA
     Indication: Autologous haematopoietic stem cell transplant
     Dosage: 16.5 MILLIGRAM/SQ. METER, TOTAL
  6. THIOTEPA [Suspect]
     Active Substance: THIOTEPA
     Dosage: 16.5 MILLIGRAM/SQ. METER, TOTAL
     Route: 065
  7. THIOTEPA [Suspect]
     Active Substance: THIOTEPA
     Dosage: 16.5 MILLIGRAM/SQ. METER, TOTAL
     Route: 065
  8. THIOTEPA [Suspect]
     Active Substance: THIOTEPA
     Dosage: 16.5 MILLIGRAM/SQ. METER, TOTAL
  9. VINCRISTINE [Suspect]
     Active Substance: VINCRISTINE
     Indication: Chemotherapy
     Dosage: 4.5 MILLIGRAM/SQ. METER, TOTAL
  10. VINCRISTINE [Suspect]
     Active Substance: VINCRISTINE
     Dosage: 4.5 MILLIGRAM/SQ. METER, TOTAL
     Route: 065
  11. VINCRISTINE [Suspect]
     Active Substance: VINCRISTINE
     Dosage: 4.5 MILLIGRAM/SQ. METER, TOTAL
     Route: 065
  12. VINCRISTINE [Suspect]
     Active Substance: VINCRISTINE
     Dosage: 4.5 MILLIGRAM/SQ. METER, TOTAL
  13. CARBOPLATIN [Suspect]
     Active Substance: CARBOPLATIN
     Indication: Chemotherapy
     Dosage: 1800 MILLIGRAM/SQ. METER, TOTAL
  14. CARBOPLATIN [Suspect]
     Active Substance: CARBOPLATIN
     Dosage: 1800 MILLIGRAM/SQ. METER, TOTAL
     Route: 065
  15. CARBOPLATIN [Suspect]
     Active Substance: CARBOPLATIN
     Dosage: 1800 MILLIGRAM/SQ. METER, TOTAL
     Route: 065
  16. CARBOPLATIN [Suspect]
     Active Substance: CARBOPLATIN
     Dosage: 1800 MILLIGRAM/SQ. METER, TOTAL
  17. CYCLOPHOSPHAMIDE [Suspect]
     Active Substance: CYCLOPHOSPHAMIDE
     Indication: Chemotherapy
     Dosage: 4000 MILLIGRAM/SQ. METER, TOTAL
  18. CYCLOPHOSPHAMIDE [Suspect]
     Active Substance: CYCLOPHOSPHAMIDE
     Dosage: 4000 MILLIGRAM/SQ. METER, TOTAL
     Route: 065
  19. CYCLOPHOSPHAMIDE [Suspect]
     Active Substance: CYCLOPHOSPHAMIDE
     Dosage: 4000 MILLIGRAM/SQ. METER, TOTAL
     Route: 065
  20. CYCLOPHOSPHAMIDE [Suspect]
     Active Substance: CYCLOPHOSPHAMIDE
     Dosage: 4000 MILLIGRAM/SQ. METER, TOTAL
  21. ETOPOSIDE [Suspect]
     Active Substance: ETOPOSIDE
     Indication: Chemotherapy
     Dosage: 2400 MILLIGRAM/SQ. METER, TOTAL
  22. ETOPOSIDE [Suspect]
     Active Substance: ETOPOSIDE
     Dosage: 2400 MILLIGRAM/SQ. METER, TOTAL
     Route: 065
  23. ETOPOSIDE [Suspect]
     Active Substance: ETOPOSIDE
     Dosage: 2400 MILLIGRAM/SQ. METER, TOTAL
     Route: 065
  24. ETOPOSIDE [Suspect]
     Active Substance: ETOPOSIDE
     Dosage: 2400 MILLIGRAM/SQ. METER, TOTAL
  25. TEMOZOLOMIDE [Suspect]
     Active Substance: TEMOZOLOMIDE
     Indication: Chemotherapy
     Dosage: 4200 MILLIGRAM/SQ. METER, TOTAL
  26. TEMOZOLOMIDE [Suspect]
     Active Substance: TEMOZOLOMIDE
     Dosage: 4200 MILLIGRAM/SQ. METER, TOTAL
     Route: 065
  27. TEMOZOLOMIDE [Suspect]
     Active Substance: TEMOZOLOMIDE
     Dosage: 4200 MILLIGRAM/SQ. METER, TOTAL
     Route: 065
  28. TEMOZOLOMIDE [Suspect]
     Active Substance: TEMOZOLOMIDE
     Dosage: 4200 MILLIGRAM/SQ. METER, TOTAL

REACTIONS (1)
  - Renal cell carcinoma stage I [Unknown]
